FAERS Safety Report 5347388-5 (Version None)
Quarter: 2007Q2

REPORT INFORMATION
  Report Type: 
  Country: None (occurrence: None)
  Receive Date: 20070507
  Receipt Date: 20060809
  Transmission Date: 20071010
  Serious: Yes (Other)
  Sender: FDA-Public Use
  Company Number: 29731

PATIENT
  Sex: Female
  Weight: 77.1115 kg

DRUGS (2)
  1. ADRIAMYCIN PFS [Suspect]
     Indication: BREAST CANCER
     Dates: start: 20010101
  2. CYTOXAN [Concomitant]

REACTIONS (3)
  - ALOPECIA [None]
  - DIARRHOEA [None]
  - MALAISE [None]
